FAERS Safety Report 8532818-8 (Version None)
Quarter: 2012Q3

REPORT INFORMATION
  Report Type: 
  Country: None (occurrence: None)
  Receive Date: 20120724
  Receipt Date: 20120721
  Transmission Date: 20120928
  Serious: Yes (Other)
  Sender: FDA-Public Use
  Company Number: PHHY2012NL062928

PATIENT
  Sex: Female
  Weight: 66 kg

DRUGS (5)
  1. BISOPROLOL FUMARATE [Concomitant]
     Dosage: 1.25 MG, QD
  2. SANDOSTATIN LAR [Suspect]
     Indication: ACROMEGALY
     Dosage: 20 MG, ONCE PER 4 WEEKS
     Dates: start: 20090526
  3. PANTOPRAZOLE [Concomitant]
     Dosage: 40 MG, BID
  4. LANOXIN [Concomitant]
     Dosage: 0.062 MG, QD
  5. FRAXODI [Concomitant]
     Dosage: 0.6 ML, QD
     Route: 058

REACTIONS (1)
  - CARCINOID TUMOUR [None]
